FAERS Safety Report 6909592-1 (Version None)
Quarter: 2010Q3

REPORT INFORMATION
  Report Type: 
  Country: None (occurrence: None)
  Receive Date: 20100805
  Receipt Date: 20100728
  Transmission Date: 20110219
  Serious: Yes (Death, Other)
  Sender: FDA-Public Use
  Company Number: IT-ELI_LILLY_AND_COMPANY-IT201007007765

PATIENT
  Age: 59 Year
  Sex: Male

DRUGS (8)
  1. GEMZAR [Suspect]
     Indication: RENAL CANCER
     Dosage: UNK, OTHER (DAYS 1 AND 8 EVERY 28 DAYS)
     Route: 042
  2. FLUOROURACILE [Concomitant]
     Dosage: UNK, OTHER (DAYS 1 AND 8 EVERY 28 DAYS)
     Route: 042
  3. AVASTIN [Concomitant]
     Dosage: 10 MG/KG, OTHER (EVERY 2 WEEKS, ON DAYS 1 AND 15)
     Route: 042
  4. PROLEUKIN /00921302/ [Concomitant]
     Dosage: 1000000 IU/M2, (EVERY 12 HOURS ON DAYS 8, 9, 15, AND 16)
     Route: 058
  5. PROLEUKIN /00921302/ [Concomitant]
     Dosage: 1000000 IU/M2, DAILY (1/D)( FROM DAY 10 TO 12, AND FROM DAY 17 TO 19)
     Route: 058
  6. IFN ALPHA [Concomitant]
     Dosage: 3000000 IU, DAILY (1/D) (IN THE EVENING OF DAYS 10, 12, 17, AND 19)
     Route: 058
  7. SODIUM CHLORIDE [Concomitant]
     Dosage: 0.9 %, UNK (500 ML)
     Route: 042
  8. SODIUM CHLORIDE [Concomitant]
     Dosage: 0.9 %, UNK (100 ML)
     Route: 042

REACTIONS (2)
  - ACUTE MYELOID LEUKAEMIA [None]
  - BONE LESION [None]
